FAERS Safety Report 18928426 (Version 2)
Quarter: 2021Q1

REPORT INFORMATION
  Report Type: Spontaneous
  Country: JP (occurrence: JP)
  Receive Date: 20210223
  Receipt Date: 20210322
  Transmission Date: 20210420
  Serious: Yes (Hospitalization, Other)
  Sender: FDA-Public Use
  Company Number: JP-ROCHE-2775062

PATIENT
  Age: 81 Year
  Weight: 47 kg

DRUGS (8)
  1. ACTEMRA [Suspect]
     Active Substance: TOCILIZUMAB
     Indication: STILL^S DISEASE
     Dosage: MOST RECENT DOSE ON 05/FEB/2021
     Route: 041
     Dates: start: 20201119
  2. FOSAMAC [Concomitant]
     Active Substance: ALENDRONATE SODIUM
     Route: 048
     Dates: start: 20201213
  3. METHOTREXATE. [Suspect]
     Active Substance: METHOTREXATE
     Indication: STILL^S DISEASE
     Route: 048
  4. EPOGIN [Concomitant]
     Active Substance: ERYTHROPOIETIN
     Dosage: DOSAGE IS UNCERTAIN.
     Route: 042
  5. PREDONINE [Suspect]
     Active Substance: PREDNISOLONE
     Indication: STILL^S DISEASE
     Dosage: MOST RECENT DOSE NN 19/FEB/2021
     Route: 048
     Dates: start: 20200907
  6. ENTECAVIR MONOHYDRATE [Concomitant]
     Active Substance: ENTECAVIR
     Route: 048
     Dates: start: 20201212
  7. ROZEREM [Concomitant]
     Active Substance: RAMELTEON
     Route: 048
     Dates: start: 20201212
  8. METHOTREXATE. [Suspect]
     Active Substance: METHOTREXATE
     Route: 048
     Dates: start: 20201002

REACTIONS (2)
  - Rectal ulcer [Recovering/Resolving]
  - Cytomegalovirus infection [Unknown]

NARRATIVE: CASE EVENT DATE: 20210210
